FAERS Safety Report 7623258-4 (Version None)
Quarter: 2011Q3

REPORT INFORMATION
  Report Type: 
  Country: None (occurrence: None)
  Receive Date: 20110720
  Receipt Date: 20100504
  Transmission Date: 20111222
  Serious: Yes (Other)
  Sender: FDA-Public Use
  Company Number: US-JNJFOC-20110603900

PATIENT
  Sex: Male

DRUGS (3)
  1. CHILDREN'S TYLENOL PLUS COUGH [Suspect]
     Indication: PRODUCT USED FOR UNKNOWN INDICATION
  2. CHILDREN'S MOTRIN [Suspect]
  3. CHILDREN'S MOTRIN [Suspect]
     Indication: PRODUCT USED FOR UNKNOWN INDICATION

REACTIONS (2)
  - CHILLS [None]
  - HALLUCINATION [None]
